FAERS Safety Report 14250470 (Version 1)
Quarter: 2017Q4

REPORT INFORMATION
  Report Type: Other
  Country: DE (occurrence: DE)
  Receive Date: 20171205
  Receipt Date: 20171205
  Transmission Date: 20180321
  Serious: No
  Sender: FDA-Public Use
  Company Number: DE-LUPIN PHARMACEUTICALS INC.-2017-04138

PATIENT
  Sex: Female
  Weight: 75 kg

DRUGS (4)
  1. SIMVASTATIN. [Suspect]
     Active Substance: SIMVASTATIN
     Indication: ARTERIAL OCCLUSIVE DISEASE
     Dosage: 20 MG, UNK
     Route: 065
     Dates: start: 2014
  2. PRAVASTATIN. [Suspect]
     Active Substance: PRAVASTATIN
     Indication: ARTERIAL OCCLUSIVE DISEASE
     Dosage: 40 MG, UNK
     Route: 065
     Dates: start: 2002
  3. EZETROL [Suspect]
     Active Substance: EZETIMIBE
     Indication: ARTERIAL OCCLUSIVE DISEASE
     Dosage: 10 MG, UNK
     Route: 065
     Dates: start: 2016
  4. ATORVASTATIN [Suspect]
     Active Substance: ATORVASTATIN
     Indication: ARTERIAL OCCLUSIVE DISEASE
     Dosage: 40 MG, UNK
     Route: 065
     Dates: start: 1990

REACTIONS (1)
  - Myalgia [Recovering/Resolving]
